FAERS Safety Report 4300985-8 (Version None)
Quarter: 2004Q1

REPORT INFORMATION
  Report Type: 
  Country: None (occurrence: None)
  Receive Date: 20040219
  Receipt Date: 20040206
  Transmission Date: 20041129
  Serious: Yes (Hospitalization)
  Sender: FDA-Public Use
  Company Number: MEDI-0001453

PATIENT
  Age: 16 Month
  Sex: Female
  Weight: 8.72 kg

DRUGS (12)
  1. SYNAGIS [Suspect]
     Indication: ANTIVIRAL PROPHYLAXIS
     Dosage: SEE IMAGE
     Route: 030
     Dates: start: 20031128, end: 20040126
  2. SYNAGIS [Suspect]
     Indication: ANTIVIRAL PROPHYLAXIS
     Dosage: SEE IMAGE
     Route: 030
     Dates: start: 20031129
  3. SYNAGIS [Suspect]
     Indication: ANTIVIRAL PROPHYLAXIS
     Dosage: SEE IMAGE
     Route: 030
     Dates: start: 20031225
  4. WARFARIN POTASSIUM (WARFARIN POTASSIUM) [Concomitant]
  5. AMOXICILLIN [Concomitant]
  6. MUCODYNE (CARBOCISTEINE) [Concomitant]
  7. ASVERIN (TIPERIDINE HIBENZATE) [Concomitant]
  8. PERIACTIN [Concomitant]
  9. LASIX [Concomitant]
  10. ASPIRIN (1-CHLORO-2,4 -DINITROBENZENE) [Concomitant]
  11. NOVAROK (IMIDAPRIL HYDROCHLORIDE) [Concomitant]
  12. ALDACTONE [Concomitant]

REACTIONS (4)
  - CARDIAC FAILURE [None]
  - FACE OEDEMA [None]
  - URINE OUTPUT DECREASED [None]
  - WEIGHT INCREASED [None]
